FAERS Safety Report 5176950-8 (Version None)
Quarter: 2006Q4

REPORT INFORMATION
  Report Type: 
  Country: None (occurrence: None)
  Receive Date: 20061212
  Receipt Date: 20061212
  Transmission Date: 20070319
  Serious: Yes (Life-Threatening)
  Sender: FDA-Public Use
  Company Number: None

PATIENT
  Age: 72 Year
  Sex: Male
  Weight: 87.0906 kg

DRUGS (1)
  1. JANUVIA [Suspect]
     Dates: start: 20061116

REACTIONS (3)
  - DRUG HYPERSENSITIVITY [None]
  - DYSPHAGIA [None]
  - SWOLLEN TONGUE [None]
